FAERS Safety Report 7352837-7 (Version None)
Quarter: 2011Q1

REPORT INFORMATION
  Report Type: 
  Country: None (occurrence: None)
  Receive Date: 20110302
  Receipt Date: 20100407
  Transmission Date: 20110831
  Serious: Yes (Hospitalization)
  Sender: FDA-Public Use
  Company Number: 306709

PATIENT
  Age: 72 Year
  Sex: Male
  Weight: 108.8 kg

DRUGS (2)
  1. NOVOLIN R [Suspect]
     Indication: TYPE 2 DIABETES MELLITUS
     Dosage: SLIDING SCALE, SUBCUTANEOUS
     Route: 058
  2. LEVEMIR [Suspect]
     Indication: TYPE 2 DIABETES MELLITUS
     Dosage: 80 IU, QD (40 IU AM, 40 IU PM), SUBCUTANEOUS
     Route: 058
     Dates: start: 20080101

REACTIONS (1)
  - BLOOD GLUCOSE INCREASED [None]
